FAERS Safety Report 7020638-5 (Version None)
Quarter: 2010Q3

REPORT INFORMATION
  Report Type: 
  Country: None (occurrence: None)
  Receive Date: 20100929
  Receipt Date: 20100923
  Transmission Date: 20110219
  Serious: Yes (Hospitalization)
  Sender: FDA-Public Use
  Company Number: B0675897A

PATIENT
  Sex: Female

DRUGS (21)
  1. CLAMOXYL [Suspect]
     Dosage: 1G THREE TIMES PER DAY
     Route: 048
     Dates: start: 20100604, end: 20100616
  2. CALCIPARINE [Suspect]
     Dosage: 1000IU TWENTY FOUR TIMES PER DAY
     Route: 042
     Dates: start: 20100604, end: 20100626
  3. ESIDRIX [Suspect]
     Indication: PRODUCT USED FOR UNKNOWN INDICATION
     Route: 048
     Dates: start: 20100611, end: 20100626
  4. NEBIVOLOL [Suspect]
     Indication: PRODUCT USED FOR UNKNOWN INDICATION
     Route: 048
     Dates: start: 20100613, end: 20100626
  5. RISORDAN [Suspect]
     Indication: PRODUCT USED FOR UNKNOWN INDICATION
     Dosage: 1MG TWENTY FOUR TIMES PER DAY
     Route: 042
     Dates: start: 20100611, end: 20100615
  6. CORDARONE [Suspect]
     Indication: PRODUCT USED FOR UNKNOWN INDICATION
     Dosage: 200MG PER DAY
     Route: 048
     Dates: start: 20100604, end: 20100614
  7. LOXEN [Concomitant]
     Dosage: 50MG PER DAY
     Route: 048
     Dates: end: 20100617
  8. EUPRESSYL [Concomitant]
     Route: 048
     Dates: end: 20100627
  9. LASIX [Concomitant]
     Dosage: 40MG TWICE PER DAY
     Route: 048
     Dates: end: 20100627
  10. ARIMIDEX [Concomitant]
     Indication: BREAST CANCER
     Dosage: 1MG PER DAY
     Route: 048
     Dates: end: 20100609
  11. PREVISCAN [Concomitant]
     Dosage: 15MG PER DAY
     Route: 048
     Dates: end: 20100611
  12. LANTUS [Concomitant]
     Dosage: 12IU PER DAY
     Route: 058
     Dates: end: 20100626
  13. LEVOTHYROXINE SODIUM [Concomitant]
     Indication: HYPOTHYROIDISM
     Dosage: 250MCG PER DAY
     Route: 048
     Dates: end: 20100626
  14. NEXIUM [Concomitant]
     Route: 048
     Dates: start: 20100604, end: 20100607
  15. ALDACTONE [Concomitant]
     Dosage: 25MG PER DAY
     Route: 048
     Dates: end: 20100604
  16. ATARAX [Concomitant]
     Dosage: 25MG AT NIGHT
     Route: 048
     Dates: end: 20100626
  17. ALPRAZOLAM [Concomitant]
     Dosage: .25MG AT NIGHT
     Route: 065
  18. KARDEGIC [Concomitant]
     Dosage: 75MG PER DAY
     Route: 065
  19. SEROPLEX [Concomitant]
     Dosage: 10MG PER DAY
     Route: 065
  20. ZOLPIDEM TARTRATE [Concomitant]
     Dosage: 1UNIT PER DAY
     Route: 065
  21. VALSARTAN  AND HYDROCHLOROTHIAZIDE [Concomitant]
     Dosage: 1UNIT PER DAY
     Route: 065

REACTIONS (1)
  - HEPARIN-INDUCED THROMBOCYTOPENIA [None]
